FAERS Safety Report 8574208-8 (Version None)
Quarter: 2012Q2

REPORT INFORMATION
  Report Type: 
  Country: None (occurrence: None)
  Receive Date: 20120423
  Receipt Date: 20100712
  Transmission Date: 20120825
  Serious: Yes (Other)
  Sender: FDA-Public Use
  Company Number: PHHY2010US30702

PATIENT
  Age: 69 Year
  Sex: Male
  Weight: 94.1 kg

DRUGS (15)
  1. ALOXI [Concomitant]
  2. NEULASTA [Concomitant]
  3. PREDNISONE TAB [Concomitant]
  4. ASPIRIN [Concomitant]
  5. ARANESP [Concomitant]
  6. ALLOPURINOL [Concomitant]
  7. EXJADE [Suspect]
     Indication: IRON OVERLOAD
     Dosage: 500 MG DAILY, ORAL
     Route: 048
     Dates: start: 20100329
  8. EXJADE [Suspect]
     Indication: MYELODYSPLASTIC SYNDROME
     Dosage: 500 MG DAILY, ORAL
     Route: 048
     Dates: start: 20100329
  9. EXJADE [Suspect]
     Indication: IRON OVERLOAD
     Dosage: 500 MG DAILY, ORAL
     Route: 048
     Dates: start: 20100504, end: 20100511
  10. EXJADE [Suspect]
     Indication: MYELODYSPLASTIC SYNDROME
     Dosage: 500 MG DAILY, ORAL
     Route: 048
     Dates: start: 20100504, end: 20100511
  11. VIDAZA [Concomitant]
  12. AMBIEN [Concomitant]
  13. LISINOPRIL [Concomitant]
  14. LUNESTA [Concomitant]
  15. INDOMETHACIN [Concomitant]

REACTIONS (11)
  - HYPERSOMNIA [None]
  - DYSPNOEA [None]
  - FATIGUE [None]
  - SERUM FERRITIN INCREASED [None]
  - ARTHRITIS [None]
  - DRUG INTOLERANCE [None]
  - THROMBOCYTOPENIA [None]
  - MALAISE [None]
  - ANAEMIA [None]
  - WHITE BLOOD CELL COUNT DECREASED [None]
  - NEUTROPHIL COUNT DECREASED [None]
